FAERS Safety Report 23024195 (Version 1)
Quarter: 2023Q4

REPORT INFORMATION
  Report Type: Spontaneous
  Country: CA (occurrence: CA)
  Receive Date: 20231004
  Receipt Date: 20231004
  Transmission Date: 20240110
  Serious: Yes (Other)
  Sender: FDA-Public Use
  Company Number: CA-AUROBINDO-AUR-APL-2023-060814

PATIENT
  Age: 38 Year
  Sex: Female
  Weight: 48 kg

DRUGS (1)
  1. SERTRALINE [Suspect]
     Active Substance: SERTRALINE HYDROCHLORIDE
     Indication: Anxiolytic therapy
     Dosage: 25 MILLIGRAM, ONCE A DAY
     Route: 048

REACTIONS (6)
  - Palpitations [Recovering/Resolving]
  - Blood pressure decreased [Recovering/Resolving]
  - Blood potassium decreased [Recovering/Resolving]
  - Dizziness [Recovering/Resolving]
  - Heart rate increased [Recovering/Resolving]
  - Pallor [Recovering/Resolving]
